FAERS Safety Report 14120473 (Version 1)
Quarter: 2017Q4

REPORT INFORMATION
  Report Type: Spontaneous
  Country: US (occurrence: US)
  Receive Date: 20171024
  Receipt Date: 20171024
  Transmission Date: 20180321
  Serious: Yes (Other)
  Sender: FDA-Public Use
  Company Number: PHHY2017US154388

PATIENT
  Age: 27 Week
  Sex: Female

DRUGS (8)
  1. PROPRANOLOL [Suspect]
     Active Substance: PROPRANOLOL HYDROCHLORIDE
     Indication: LONG QT SYNDROME
     Dosage: 2.5 MG, Q6H
     Route: 048
  2. MAGNESIUM [Suspect]
     Active Substance: MAGNESIUM
     Indication: LONG QT SYNDROME
  3. DEXAMETHASONE. [Suspect]
     Active Substance: DEXAMETHASONE
     Indication: FOETAL EXPOSURE DURING PREGNANCY
     Route: 064
  4. MAGNESIUM [Suspect]
     Active Substance: MAGNESIUM
     Indication: FOETAL EXPOSURE DURING PREGNANCY
     Dosage: MATERNAL SERUM LEVELS 5-6 DL
     Route: 064
  5. LIDOCAINE. [Suspect]
     Active Substance: LIDOCAINE
     Indication: LONG QT SYNDROME
  6. LIDOCAINE. [Suspect]
     Active Substance: LIDOCAINE
     Indication: FOETAL EXPOSURE DURING PREGNANCY
     Dosage: 1 MG/KG OF MATERNAL WEIGHT FOLLOWED BY 1 MG/MIN CONTINUOUS INFUSION
     Route: 042
  7. ESMOLOL [Suspect]
     Active Substance: ESMOLOL HYDROCHLORIDE
     Indication: LONG QT SYNDROME
     Route: 042
  8. MEXILETINE [Suspect]
     Active Substance: MEXILETINE
     Indication: LONG QT SYNDROME
     Dosage: 4.5 MG/KG, Q8H
     Route: 048

REACTIONS (4)
  - Torsade de pointes [Unknown]
  - Low birth weight baby [Unknown]
  - Foetal exposure during pregnancy [Unknown]
  - Premature baby [Unknown]
